FAERS Safety Report 16335983 (Version 1)
Quarter: 2019Q2

REPORT INFORMATION
  Report Type: Spontaneous
  Country: US (occurrence: US)
  Receive Date: 20190415
  Receipt Date: 20190415
  Transmission Date: 20190711
  Serious: No
  Sender: FDA-Public Use
  Company Number: None

PATIENT
  Age: 79 Year
  Sex: Female

DRUGS (1)
  1. EXEMESTANE TAB 25MG [Suspect]
     Active Substance: EXEMESTANE
     Dosage: ?          OTHER FREQUENCY:OTHER;?
     Route: 048
     Dates: start: 201902

REACTIONS (1)
  - Bronchitis [None]

NARRATIVE: CASE EVENT DATE: 20190415
